FAERS Safety Report 8589999-X (Version None)
Quarter: 2012Q3

REPORT INFORMATION
  Report Type: 
  Country: None (occurrence: None)
  Receive Date: 20120813
  Receipt Date: 20120731
  Transmission Date: 20120928
  Serious: Yes (Other)
  Sender: FDA-Public Use
  Company Number: US-ELI_LILLY_AND_COMPANY-US201204009176

PATIENT
  Sex: Female

DRUGS (3)
  1. LANTUS [Concomitant]
     Dosage: UNK
  2. HUMALOG [Suspect]
     Indication: DIABETES MELLITUS
     Dosage: UNK, PRN
     Dates: start: 20090401
  3. HUMALOG [Suspect]
     Dosage: UNK, PRN

REACTIONS (6)
  - PRODUCT TAMPERING [None]
  - NAUSEA [None]
  - BLOOD GLUCOSE INCREASED [None]
  - FOOD POISONING [None]
  - TREMOR [None]
  - CONVULSION [None]
